FAERS Safety Report 6023267-5 (Version None)
Quarter: 2008Q4

REPORT INFORMATION
  Report Type: 
  Country: None (occurrence: None)
  Receive Date: 20081222
  Receipt Date: 20081017
  Transmission Date: 20090506
  Serious: No
  Sender: FDA-Public Use
  Company Number: SPV1-2008-02252

PATIENT
  Age: 8 Year
  Sex: Male
  Weight: 25.4 kg

DRUGS (3)
  1. VYVANSE [Suspect]
     Indication: ATTENTION DEFICIT/HYPERACTIVITY DISORDER
     Dosage: 1X/DAY:QD, ORAL
     Route: 048
     Dates: start: 20080101, end: 20080101
  2. CELEXA /00582602/ (CITALOPRAM HYDROBROMIDE) [Concomitant]
  3. TENEX [Concomitant]

REACTIONS (1)
  - DYSTHYMIC DISORDER [None]
